FAERS Safety Report 25951018 (Version 2)
Quarter: 2025Q4

REPORT INFORMATION
  Report Type: Spontaneous
  Country: US (occurrence: US)
  Receive Date: 20251023
  Receipt Date: 20251031
  Transmission Date: 20260117
  Serious: Yes (Hospitalization, Other)
  Sender: DR REDDYS
  Company Number: US-DRL-USA-USA/2025/10/015729

PATIENT
  Age: 5 Decade
  Sex: Female

DRUGS (12)
  1. CYCLOPHOSPHAMIDE [Suspect]
     Active Substance: CYCLOPHOSPHAMIDE
     Indication: Hodgkin^s disease
  2. DOXORUBICIN [Suspect]
     Active Substance: DOXORUBICIN
     Indication: Hodgkin^s disease
  3. VALGANCICLOVIR [Suspect]
     Active Substance: VALGANCICLOVIR
     Indication: Cytomegalovirus mucocutaneous ulcer
     Dosage: 450-900 MG TWICE DAILY
     Route: 048
  4. VALGANCICLOVIR [Suspect]
     Active Substance: VALGANCICLOVIR
     Dosage: 450-900 MG TWICE DAILY
     Route: 048
  5. DEXAMETHASONE [Suspect]
     Active Substance: DEXAMETHASONE
     Indication: Hodgkin^s disease
  6. VINBLASTINE [Suspect]
     Active Substance: VINBLASTINE
     Indication: Hodgkin^s disease
  7. DACARBAZINE [Suspect]
     Active Substance: DACARBAZINE
     Indication: Hodgkin^s disease
  8. GANCICLOVIR [Concomitant]
     Active Substance: GANCICLOVIR
     Indication: Cytomegalovirus mucocutaneous ulcer
     Dosage: 450-900 MG TWICE DAILY
     Route: 042
  9. ACYCLOVIR [Concomitant]
     Active Substance: ACYCLOVIR
     Indication: Prophylaxis
     Route: 048
  10. ACYCLOVIR [Concomitant]
     Active Substance: ACYCLOVIR
     Indication: Herpes simplex test positive
     Route: 042
  11. DOLUTEGRAVIR, TENOFOVIR ALAFENAMIDE, EMTRICITABINE [Concomitant]
     Indication: HIV infection
  12. CIDOFOVIR [Concomitant]
     Active Substance: CIDOFOVIR
     Indication: Herpes simplex test positive
     Dosage: 1% OINTMENT
     Route: 061

REACTIONS (13)
  - Neutropenia [Unknown]
  - Cytomegalovirus mucocutaneous ulcer [Recovering/Resolving]
  - Vomiting [Unknown]
  - Diarrhoea [Unknown]
  - Drug ineffective [Unknown]
  - Anal ulcer [Recovering/Resolving]
  - Herpes simplex [Recovered/Resolved]
  - Bacteraemia [Unknown]
  - Acute kidney injury [Unknown]
  - Staphylococcal infection [Unknown]
  - Enterococcal infection [Unknown]
  - Clostridium difficile colitis [Unknown]
  - Product use in unapproved indication [Unknown]
